FAERS Safety Report 5711324-X (Version None)
Quarter: 2008Q2

REPORT INFORMATION
  Report Type: 
  Country: None (occurrence: None)
  Receive Date: 20080421
  Receipt Date: 20080408
  Transmission Date: 20081010
  Serious: Yes (Congenital Anomaly)
  Sender: FDA-Public Use
  Company Number: A0687278A

PATIENT
  Sex: Male

DRUGS (3)
  1. PAXIL CR [Suspect]
     Indication: DRUG USE FOR UNKNOWN INDICATION
     Dates: start: 19940101
  2. ALBUTEROL [Concomitant]
     Indication: ASTHMA
  3. VITAMIN TAB [Concomitant]

REACTIONS (4)
  - ATRIAL SEPTAL DEFECT [None]
  - DRUG EXPOSURE DURING PREGNANCY [None]
  - HEART DISEASE CONGENITAL [None]
  - MITRAL VALVE INCOMPETENCE [None]
